FAERS Safety Report 9950722 (Version 1)
Quarter: 2014Q1

REPORT INFORMATION
  Report Type: Spontaneous
  Country: US (occurrence: US)
  Receive Date: 20140304
  Receipt Date: 20140304
  Transmission Date: 20141002
  Serious: No
  Sender: FDA-Public Use
  Company Number: US-AMGEN-USASP2013074612

PATIENT
  Age: 49 Year
  Sex: Female
  Weight: 105.22 kg

DRUGS (8)
  1. ENBREL [Suspect]
     Indication: PSORIASIS
     Dosage: 50 MG, QWK
     Route: 058
  2. ENBREL [Suspect]
     Indication: PSORIATIC ARTHROPATHY
  3. METHOTREXATE [Concomitant]
     Dosage: 2.5 MG, UNK
  4. FOLIC ACID [Concomitant]
     Dosage: UNK
  5. VITAMIN D                          /00107901/ [Concomitant]
     Dosage: 400 UNIT, UNK
  6. PROZAC [Concomitant]
     Dosage: 10 MG, UNK
  7. GABAPENTIN [Concomitant]
     Dosage: 100 MG/DL, UNK
  8. PERCOCET                           /00867901/ [Concomitant]
     Dosage: 10-325 MG, UNK

REACTIONS (8)
  - Nausea [Recovering/Resolving]
  - Headache [Recovering/Resolving]
  - Rash pruritic [Recovering/Resolving]
  - Rash papular [Recovering/Resolving]
  - Increased tendency to bruise [Recovering/Resolving]
  - Laceration [Recovering/Resolving]
  - Skin haemorrhage [Recovering/Resolving]
  - Injection site bruising [Recovering/Resolving]
